FAERS Safety Report 14302360 (Version 1)
Quarter: 2017Q4

REPORT INFORMATION
  Report Type: Spontaneous
  Country: US (occurrence: US)
  Receive Date: 20171219
  Receipt Date: 20171219
  Transmission Date: 20180321
  Serious: No
  Sender: FDA-Public Use
  Company Number: US-SUPERNUS PHARMACEUTICALS, INC.-2017SUP00063

PATIENT
  Sex: Female
  Weight: 58.96 kg

DRUGS (13)
  1. TROKENDI XR [Suspect]
     Active Substance: TOPIRAMATE
     Dosage: 25 MG, 1X/DAY IN THE EVENING
     Dates: start: 201611
  2. TROKENDI XR [Suspect]
     Active Substance: TOPIRAMATE
     Indication: MIGRAINE
     Dosage: 50 MG, UNK
     Dates: start: 201505, end: 2015
  3. NADOLOL. [Concomitant]
     Active Substance: NADOLOL
     Dosage: 40 MG, 1X/DAY
  4. NORTRIPTYLINE [Concomitant]
     Active Substance: NORTRIPTYLINE
     Dosage: 50 MG, 1X/DAY
  5. TROKENDI XR [Suspect]
     Active Substance: TOPIRAMATE
     Dosage: 125 MG, UNK
     Dates: start: 201508
  6. TROKENDI XR [Suspect]
     Active Substance: TOPIRAMATE
     Indication: MIGRAINE
     Dosage: 200 MG, 1X/DAY
     Route: 048
     Dates: start: 2016
  7. TROKENDI XR [Suspect]
     Active Substance: TOPIRAMATE
     Dosage: 100 MG, UNK
     Dates: start: 201507
  8. TROKENDI XR [Suspect]
     Active Substance: TOPIRAMATE
     Dosage: 25 MG, 1X/DAY IN THE EVENING
     Dates: start: 2016, end: 201611
  9. TROKENDI XR [Suspect]
     Active Substance: TOPIRAMATE
     Dosage: 150 MG, UNK
     Dates: start: 201509
  10. TROKENDI XR [Suspect]
     Active Substance: TOPIRAMATE
     Dosage: 175 MG, UNK
     Dates: start: 201510
  11. TROKENDI XR [Suspect]
     Active Substance: TOPIRAMATE
     Indication: MIGRAINE
     Dosage: 25 MG, 1X/DAY
     Route: 048
     Dates: start: 201504
  12. TROKENDI XR [Suspect]
     Active Substance: TOPIRAMATE
     Dosage: 75 MG, UNK
     Dates: start: 201506
  13. TROKENDI XR [Suspect]
     Active Substance: TOPIRAMATE
     Dosage: 200 MG, UNK
     Dates: start: 201511

REACTIONS (7)
  - Tongue discomfort [Not Recovered/Not Resolved]
  - Memory impairment [Not Recovered/Not Resolved]
  - Speech disorder [Not Recovered/Not Resolved]
  - Cognitive disorder [Not Recovered/Not Resolved]
  - Migraine [Recovered/Resolved]
  - Aphasia [Not Recovered/Not Resolved]
  - Off label use [Unknown]
